FAERS Safety Report 13552456 (Version 1)
Quarter: 2017Q2

REPORT INFORMATION
  Report Type: Spontaneous
  Country: RU (occurrence: RU)
  Receive Date: 20170517
  Receipt Date: 20170517
  Transmission Date: 20170830
  Serious: Yes (Life-Threatening, Hospitalization, Other)
  Sender: FDA-Public Use
  Company Number: RU-ASTRAZENECA-2017SE51270

PATIENT
  Sex: Male
  Weight: 72 kg

DRUGS (5)
  1. BRILINTA [Suspect]
     Active Substance: TICAGRELOR
     Indication: MYOCARDIAL INFARCTION
     Route: 048
     Dates: start: 201611, end: 20170301
  2. BRILINTA [Suspect]
     Active Substance: TICAGRELOR
     Indication: ARTERIAL STENT INSERTION
     Route: 048
     Dates: start: 201611, end: 20170301
  3. CONCOR [Concomitant]
     Active Substance: BISOPROLOL FUMARATE
     Dosage: 7.5MG UNKNOWN
     Dates: start: 2010
  4. THROMBO ASS [Concomitant]
     Active Substance: ASPIRIN
  5. BRILINTA [Suspect]
     Active Substance: TICAGRELOR
     Indication: ANGIOPLASTY
     Route: 048
     Dates: start: 201611, end: 20170301

REACTIONS (1)
  - Vascular stent thrombosis [Recovered/Resolved with Sequelae]
